FAERS Safety Report 11680896 (Version 2)
Quarter: 2015Q4

REPORT INFORMATION
  Report Type: Spontaneous
  Country: US (occurrence: US)
  Receive Date: 20151027
  Receipt Date: 20151110
  Transmission Date: 20160304
  Serious: No
  Sender: FDA-Public Use
  Company Number: US-ELI_LILLY_AND_COMPANY-US201005006808

PATIENT
  Age: 56 Year
  Sex: Female

DRUGS (4)
  1. FORTEO [Suspect]
     Active Substance: TERIPARATIDE
     Indication: OSTEOPOROSIS
     Dosage: 20 UG, DAILY (1/D)
     Dates: start: 20100517
  2. NAPROXEN. [Concomitant]
     Active Substance: NAPROXEN
  3. ALEVE [Concomitant]
     Active Substance: NAPROXEN SODIUM
  4. FORTEO [Suspect]
     Active Substance: TERIPARATIDE
     Dosage: 20 UG, QD
     Dates: end: 201107

REACTIONS (13)
  - Pain in extremity [Unknown]
  - Injection site erythema [Unknown]
  - Incorrect product storage [Unknown]
  - Myalgia [Unknown]
  - Neck pain [Unknown]
  - Drug dose omission [Recovered/Resolved]
  - Musculoskeletal pain [Unknown]
  - Skin mass [Unknown]
  - Mobility decreased [Unknown]
  - Pain [Recovering/Resolving]
  - Spondylitis [Unknown]
  - Arthralgia [Unknown]
  - Bone pain [Unknown]

NARRATIVE: CASE EVENT DATE: 201005
